FAERS Safety Report 8009127 (Version 2)
Quarter: 2013Q2

REPORT INFORMATION
  Report Type: Report from Study
  Country: MX (occurrence: MX)
  Receive Date: 20110624
  Receipt Date: 20130604
  Transmission Date: 20140414
  Serious: Yes (Other)
  Sender: FDA-Public Use
  Company Number: PHHY2011MX51826

PATIENT
  Age: 44 Year
  Sex: Male

DRUGS (1)
  1. TEGRETOL [Suspect]
     Dosage: 4 OR 5 TABLETS, DAILY
     Dates: start: 19740101

REACTIONS (2)
  - Abscess neck [Not Recovered/Not Resolved]
  - Testicular abscess [Not Recovered/Not Resolved]
